FAERS Safety Report 16937210 (Version 1)
Quarter: 2019Q4

REPORT INFORMATION
  Report Type: Spontaneous
  Country: US (occurrence: US)
  Receive Date: 20191018
  Receipt Date: 20191018
  Transmission Date: 20200122
  Serious: Yes (Hospitalization, Other)
  Sender: FDA-Public Use
  Company Number: US-GLAXOSMITHKLINE-US2019GSK188244

PATIENT
  Age: 26 Year
  Sex: Male

DRUGS (3)
  1. BENZTROPINE. [Concomitant]
     Active Substance: BENZTROPINE
  2. LAMOTRIGINE. [Suspect]
     Active Substance: LAMOTRIGINE
     Indication: AFFECTIVE DISORDER
     Dosage: UNK
     Route: 065
  3. RISPERIDONE. [Concomitant]
     Active Substance: RISPERIDONE

REACTIONS (1)
  - Haemophagocytic lymphohistiocytosis [Unknown]
